FAERS Safety Report 10615583 (Version 1)
Quarter: 2014Q4

REPORT INFORMATION
  Report Type: Spontaneous
  Country: HU (occurrence: HU)
  Receive Date: 20141201
  Receipt Date: 20141201
  Transmission Date: 20150529
  Serious: Yes (Hospitalization)
  Sender: FDA-Public Use
  Company Number: HU-BAYER-2014-172274

PATIENT
  Sex: Male

DRUGS (2)
  1. NEBILET [Concomitant]
     Active Substance: NEBIVOLOL
     Indication: HYPERTENSION
  2. STIVARGA [Suspect]
     Active Substance: REGORAFENIB
     Dosage: 40 MG, QID
     Route: 048
     Dates: start: 20141101

REACTIONS (4)
  - Weight decreased [Recovered/Resolved]
  - Stomatitis [Recovered/Resolved]
  - Malaise [Recovered/Resolved]
  - Hypertension [Recovered/Resolved]

NARRATIVE: CASE EVENT DATE: 20141112
